FAERS Safety Report 5576870-0 (Version None)
Quarter: 2007Q4

REPORT INFORMATION
  Report Type: 
  Country: None (occurrence: None)
  Receive Date: 20071228
  Receipt Date: 20071218
  Transmission Date: 20080405
  Serious: Yes (Hospitalization)
  Sender: FDA-Public Use
  Company Number: FR-GENENTECH-252618

PATIENT
  Age: 43 Year
  Sex: Male

DRUGS (7)
  1. MABTHERA [Suspect]
     Indication: RENAL TRANSPLANT
     Dates: start: 20070821
  2. INEXIUM [Suspect]
     Indication: ULCER
     Route: 042
     Dates: start: 20070828
  3. CELLCEPT [Concomitant]
     Indication: DRUG USE FOR UNKNOWN INDICATION
  4. INIPOMP [Concomitant]
     Indication: DRUG USE FOR UNKNOWN INDICATION
  5. CIFLOX [Concomitant]
     Indication: DRUG USE FOR UNKNOWN INDICATION
  6. SOLU-MEDROL [Concomitant]
     Indication: DRUG USE FOR UNKNOWN INDICATION
  7. PROGRAF [Concomitant]
     Indication: DRUG USE FOR UNKNOWN INDICATION

REACTIONS (1)
  - THROMBOCYTOPENIA [None]
